FAERS Safety Report 8334869-5 (Version None)
Quarter: 2012Q2

REPORT INFORMATION
  Report Type: 
  Country: None (occurrence: None)
  Receive Date: 20120503
  Receipt Date: 20100222
  Transmission Date: 20120825
  Serious: No
  Sender: FDA-Public Use
  Company Number: US-TEVA-2010001006

PATIENT
  Sex: Female
  Weight: 61.29 kg

DRUGS (6)
  1. GABAPENTIN [Concomitant]
     Indication: MIGRAINE
     Dosage: 600 MILLIGRAM;
  2. NUVIGIL [Suspect]
     Indication: SOMNOLENCE
     Dosage: 150 MILLIGRAM;
     Route: 048
     Dates: start: 20100101
  3. GABAPENTIN [Concomitant]
     Indication: BIPOLAR DISORDER
  4. CLONAZEPAM [Concomitant]
     Dosage: 1 MILLIGRAM;
  5. CITALOPRAM HYDROBROMIDE [Concomitant]
     Indication: BIPOLAR DISORDER
     Dosage: 60 MILLIGRAM;
  6. CITALOPRAM HYDROBROMIDE [Concomitant]
     Indication: DEPRESSION

REACTIONS (2)
  - PAIN IN EXTREMITY [None]
  - RESTLESS LEGS SYNDROME [None]
